FAERS Safety Report 8892269 (Version 1)
Quarter: 2012Q4

REPORT INFORMATION
  Report Type: 
  Country: US (occurrence: US)
  Receive Date: 20121107
  Receipt Date: 20121107
  Transmission Date: 20130627
  Serious: Yes (Hospitalization)
  Sender: FDA-Public Use
  Company Number: US-GLAXOSMITHKLINE-A0775458A

PATIENT
  Sex: Female
  Weight: 74.1 kg

DRUGS (2)
  1. AVANDIA [Suspect]
     Indication: DIABETES MELLITUS
     Dosage: 8MG Per day
     Route: 048
     Dates: start: 20041016, end: 20070221
  2. AVANDAMET [Suspect]
     Indication: DIABETES MELLITUS
     Route: 048

REACTIONS (4)
  - Coronary artery disease [Not Recovered/Not Resolved]
  - Sick sinus syndrome [Unknown]
  - Post procedural complication [Unknown]
  - Coronary artery bypass [Unknown]
